FAERS Safety Report 17300389 (Version 1)
Quarter: 2020Q1

REPORT INFORMATION
  Report Type: Spontaneous
  Country: US (occurrence: US)
  Receive Date: 20200103
  Receipt Date: 20200103
  Transmission Date: 20200409
  Serious: Yes (Hospitalization)
  Sender: FDA-Public Use
  Company Number: None

PATIENT
  Age: 56 Year
  Sex: Male
  Weight: 81.65 kg

DRUGS (13)
  1. HYDROCHLOROTHIAZIDE 25MG TAB [Suspect]
     Active Substance: HYDROCHLOROTHIAZIDE
     Indication: HYPERTENSION
     Dosage: ?          QUANTITY:1 DAY;?
     Route: 048
     Dates: start: 201806, end: 20190606
  2. LOSARTON [Concomitant]
  3. ASPRIN [Concomitant]
     Active Substance: ASPIRIN
  4. RANITIDINE. [Concomitant]
     Active Substance: RANITIDINE
  5. TYLENOL [Concomitant]
     Active Substance: ACETAMINOPHEN
  6. LORAZAPAM [Concomitant]
     Active Substance: LORAZEPAM
  7. SAW PALMENTO [Concomitant]
  8. METFORMIN [Concomitant]
     Active Substance: METFORMIN HYDROCHLORIDE
  9. ROPINROLE [Concomitant]
     Active Substance: ROPINIROLE
  10. SIMVASTATIN. [Concomitant]
     Active Substance: SIMVASTATIN
  11. HYDROCODONE [Concomitant]
     Active Substance: HYDROCODONE
  12. HYDROXAZINE HCL [Concomitant]
  13. SPIRIVA RESPIVENT [Concomitant]

REACTIONS (1)
  - Loss of consciousness [None]

NARRATIVE: CASE EVENT DATE: 201806
